FAERS Safety Report 17242491 (Version 1)
Quarter: 2020Q1

REPORT INFORMATION
  Report Type: Spontaneous
  Country: US (occurrence: US)
  Receive Date: 20200107
  Receipt Date: 20200107
  Transmission Date: 20200409
  Serious: No
  Sender: FDA-Public Use
  Company Number: US-AKRON, INC.-2078587

PATIENT
  Age: 70 Year
  Sex: Female

DRUGS (1)
  1. CALCIPOTRIENE TOPICAL SOLUTION, 0.005% (SCALP SOLUTION) [Suspect]
     Active Substance: CALCIPOTRIENE
     Indication: PSORIASIS
     Route: 061

REACTIONS (1)
  - Drug ineffective [Recovered/Resolved]
